FAERS Safety Report 11120210 (Version 1)
Quarter: 2015Q2

REPORT INFORMATION
  Report Type: Spontaneous
  Country: US (occurrence: US)
  Receive Date: 20150518
  Receipt Date: 20150518
  Transmission Date: 20150821
  Serious: Yes (Other)
  Sender: FDA-Public Use
  Company Number: US-PFIZER INC-2015162230

PATIENT
  Age: 53 Year
  Sex: Female

DRUGS (20)
  1. VITAMIN D3 [Concomitant]
     Active Substance: CHOLECALCIFEROL
     Dosage: 50000 IU, WEEKLY (50,000 INTERNATIONAL UNITS 1 CAP(S) ORALLY ONCE A WEEK)
     Route: 048
  2. ASPIRIN. [Concomitant]
     Active Substance: ASPIRIN
     Dosage: 81 MG, 1X/DAY (81MG 1 TAB(S) ORALLY ONCE A DAY)
     Route: 048
  3. LOSARTAN [Concomitant]
     Active Substance: LOSARTAN
     Dosage: 100 MG, 1X/DAY (100MG 1 TAB(S) ORALLY ONCE A DAY)
     Route: 048
  4. PAXIL [Concomitant]
     Active Substance: PAROXETINE HYDROCHLORIDE
     Dosage: 60 MG, 1X/DAY (20MG 3 TAB(S) ORALLY ONCE A DAY)
     Route: 048
  5. FLONASE [Concomitant]
     Active Substance: FLUTICASONE PROPIONATE
     Dosage: 50 ?G, 1X/DAY (50 MCG/INHALE 1 SPRAY(S) INTRANASALLY ONCE A DAY)
     Route: 045
  6. ZYRTEC [Concomitant]
     Active Substance: CETIRIZINE HYDROCHLORIDE
     Dosage: 10 MG, 1X/DAY (10MG 1 TAB(S) ORALLY ONCE A DAY)
     Route: 048
  7. LYRICA [Suspect]
     Active Substance: PREGABALIN
     Indication: FIBROMYALGIA
     Dosage: 150 MG, UNK (1 TAB TAKE ? TAB PO BID FOR FIRST WEEK, THEN 1 TAB PO BID AFTER THAT 90 DAYS)
     Route: 048
  8. TRAMADOL [Concomitant]
     Active Substance: TRAMADOL
     Dosage: 100 MG, 3X/DAY (50MG 2 TABS BY MOUTH 3 TIMES A DAY AS NEEDED)
     Route: 048
  9. CYCLOBENZAPRINE [Concomitant]
     Active Substance: CYCLOBENZAPRINE
     Indication: MUSCLE SPASMS
  10. PROVENTIL HFA [Concomitant]
     Active Substance: ALBUTEROL SULFATE
     Dosage: 2 DF, 4X/DAY (90 MCG/INH 2 PUFF(S) INHALED 4 TIMES A DAY)
     Route: 045
  11. HYDROXYZINE PAMOATE. [Concomitant]
     Active Substance: HYDROXYZINE PAMOATE
     Dosage: 50 MG, UNK (50MG 1 CAP(S) ORALLY Q6H PRN)
     Route: 048
  12. LYRICA [Suspect]
     Active Substance: PREGABALIN
     Dosage: 150 MG, 2X/DAY (1 TAB BID)
  13. PSEUDOEPHEDRINE [Concomitant]
     Active Substance: PSEUDOEPHEDRINE
     Dosage: 30 MG, UNK (30MG 1 TAB(S) ORALLY EVERY 6 HOURS)
     Route: 048
  14. CLONIDINE. [Concomitant]
     Active Substance: CLONIDINE
     Dosage: 0.1 MG, 2X/DAY (0.1MG 1 TAB(S) ORALLY 2 TIMES A DAY)
     Route: 048
  15. ELAVIL [Concomitant]
     Active Substance: AMITRIPTYLINE HYDROCHLORIDE
     Dosage: UNK (50MG 1 TAB ORAL START ? TAB QHS FOR 3 DAYS; INCREASE TO 1 TAB QHS AFTER THAT)
     Route: 048
  16. NORVASC [Concomitant]
     Active Substance: AMLODIPINE BESYLATE
     Dosage: 10 MG, 1X/DAY (10MG 1 TAB(S) ORALLY ONCE A DAY)
     Route: 048
  17. CHLORTHALIDONE. [Concomitant]
     Active Substance: CHLORTHALIDONE
     Dosage: 25 MG, UNK (25MG 1 TAB(S) ORALLY QHS)
     Route: 048
  18. LABETALOL [Concomitant]
     Active Substance: LABETALOL\LABETALOL HYDROCHLORIDE
     Dosage: 300 MG, 2X/DAY (300MG 1 TAB(S) ORALLY 2 TIMES A DAY)
     Route: 048
  19. CYCLOBENZAPRINE [Concomitant]
     Active Substance: CYCLOBENZAPRINE
     Indication: PAIN
     Dosage: 10 MG, 2X/DAY (1 TABLET AT NIGHT BEFORE BED AND 1 TABLET AROUND LUNCHTIME PRN)
     Route: 048
  20. PRAVASTATIN [Concomitant]
     Active Substance: PRAVASTATIN\PRAVASTATIN SODIUM
     Dosage: 80 MG, UNK (80MG 1 TAB(S) ORALLY ONCE A DAY (AT BEDTIME))
     Route: 048

REACTIONS (16)
  - Rhinitis allergic [Unknown]
  - Hyperlipidaemia [Unknown]
  - Schwannoma [Unknown]
  - Memory impairment [Unknown]
  - Pain [Unknown]
  - Pharyngeal abscess [Unknown]
  - Chronic kidney disease [Unknown]
  - Fibromyalgia [Unknown]
  - Hypertension [Unknown]
  - Sleep apnoea syndrome [Unknown]
  - Obesity [Unknown]
  - Depression [Unknown]
  - Glucose tolerance impaired [Unknown]
  - Anxiety [Unknown]
  - Chronic obstructive pulmonary disease [Unknown]
  - Muscle spasms [Unknown]
